FAERS Safety Report 15769552 (Version 3)
Quarter: 2019Q1

REPORT INFORMATION
  Report Type: Spontaneous
  Country: TH (occurrence: TW)
  Receive Date: 20181228
  Receipt Date: 20190320
  Transmission Date: 20190417
  Serious: Yes (Hospitalization, Other)
  Sender: FDA-Public Use
  Company Number: TH-ACTELION-A-CH2018-184052

PATIENT
  Age: 29 Year
  Sex: Female

DRUGS (19)
  1. OPSUMIT [Suspect]
     Active Substance: MACITENTAN
     Dosage: 10 MG, QD
     Route: 048
     Dates: start: 20181014
  2. DOBUTAMINE [Concomitant]
     Active Substance: DOBUTAMINE\DOBUTAMINE HYDROCHLORIDE
     Dosage: 3 ?G/KG, PER MIN
     Dates: start: 20181011, end: 20181012
  3. METHYLPREDNISOLONE. [Concomitant]
     Active Substance: METHYLPREDNISOLONE
     Indication: SYSTEMIC LUPUS ERYTHEMATOSUS
     Dosage: 40 MG, BID
     Dates: start: 20181013
  4. OPSUMIT [Suspect]
     Active Substance: MACITENTAN
     Indication: PULMONARY ARTERIAL HYPERTENSION
     Dosage: 5 MG, QD
     Route: 048
     Dates: start: 20181011, end: 20181013
  5. DOBUTAMINE [Concomitant]
     Active Substance: DOBUTAMINE\DOBUTAMINE HYDROCHLORIDE
     Dosage: 2.5 ?G/KG, PER MIN
     Dates: start: 20181013, end: 20181014
  6. AZATHIOPRINE. [Concomitant]
     Active Substance: AZATHIOPRINE
     Indication: SYSTEMIC LUPUS ERYTHEMATOSUS
     Dosage: 75 MG, QD
     Route: 048
  7. SPIRONOLACTONE. [Concomitant]
     Active Substance: SPIRONOLACTONE
     Dosage: 25 MG, QD
     Dates: start: 20181011
  8. PREDNISOLONE. [Concomitant]
     Active Substance: PREDNISOLONE
     Indication: SYSTEMIC LUPUS ERYTHEMATOSUS
     Dosage: 12.5 MG, QD
     Route: 048
     Dates: end: 20181013
  9. ASPIRIN. [Concomitant]
     Active Substance: ASPIRIN
     Indication: PULMONARY ARTERIAL HYPERTENSION
     Dosage: 100 MG, QD
     Route: 048
     Dates: end: 20181011
  10. SILDENAFIL. [Concomitant]
     Active Substance: SILDENAFIL
     Indication: PULMONARY ARTERIAL HYPERTENSION
     Dosage: 20 MG, TID
     Route: 048
  11. DOBUTAMINE [Concomitant]
     Active Substance: DOBUTAMINE\DOBUTAMINE HYDROCHLORIDE
     Dosage: 2 ?G/KG, PER MIN
     Dates: start: 20181014, end: 20181019
  12. DIGOXINE [Concomitant]
     Active Substance: DIGOXIN
     Dosage: 0.125 MG, QD
     Dates: start: 20181011
  13. LASIX [Concomitant]
     Active Substance: FUROSEMIDE
     Dosage: 40 MG, BID
     Dates: start: 20181011
  14. VENTAVIS [Concomitant]
     Active Substance: ILOPROST
     Indication: PULMONARY ARTERIAL HYPERTENSION
     Dosage: 0.5 DF, Q3H
     Route: 055
     Dates: start: 20181011, end: 20181012
  15. VENTAVIS [Concomitant]
     Active Substance: ILOPROST
     Dosage: UNK, Q4HRS
     Route: 055
     Dates: start: 20181013, end: 20181014
  16. CIPROFLOXACIN. [Concomitant]
     Active Substance: CIPROFLOXACIN
     Dosage: 400 MG, BID
  17. PREDNISOLONE. [Concomitant]
     Active Substance: PREDNISOLONE
     Dosage: 10 MG, BID
  18. VENTAVIS [Concomitant]
     Active Substance: ILOPROST
     Dosage: UNK, Q6HRS
     Route: 055
     Dates: start: 20181014, end: 20181019
  19. HYDROXYCHLOROQUINE [Concomitant]
     Active Substance: HYDROXYCHLOROQUINE
     Dosage: 200 MG, BID

REACTIONS (21)
  - Bilirubin conjugated increased [Unknown]
  - Immunoglobulins abnormal [Unknown]
  - Pleural decortication [Recovered/Resolved]
  - Cardiac failure congestive [Unknown]
  - Cough [Unknown]
  - Antinuclear antibody positive [Unknown]
  - Bleeding varicose vein [Unknown]
  - Hepatic congestion [Unknown]
  - Periportal oedema [Unknown]
  - Thrombocytopenia [Unknown]
  - Right ventricular failure [Unknown]
  - Blood bilirubin increased [Unknown]
  - Pneumonia streptococcal [Recovered/Resolved]
  - Systemic lupus erythematosus [Unknown]
  - Haemolytic anaemia [Unknown]
  - Dyspnoea [Unknown]
  - Tachycardia [Unknown]
  - Infection [Unknown]
  - Blood alkaline phosphatase increased [Unknown]
  - Gamma-glutamyltransferase increased [Unknown]
  - Empyema [Recovered/Resolved]

NARRATIVE: CASE EVENT DATE: 20181012
